FAERS Safety Report 4782658-0 (Version None)
Quarter: 2005Q3

REPORT INFORMATION
  Report Type: 
  Country: None (occurrence: None)
  Receive Date: 20050929
  Receipt Date: 20050614
  Transmission Date: 20060218
  Serious: No
  Sender: FDA-Public Use
  Company Number: 407696

PATIENT
  Age: 69 Year
  Sex: Male

DRUGS (9)
  1. COREG [Suspect]
     Indication: HYPERTENSION
     Dosage: 12.5MG TWICE PER DAY
     Route: 048
     Dates: start: 20041001
  2. CLARINEX [Concomitant]
  3. STEROID CREAM [Concomitant]
  4. AVANDIA [Concomitant]
  5. NIASPAN [Concomitant]
  6. LANTUS [Concomitant]
  7. SPIRONOLACTONE [Concomitant]
  8. ZOCOR [Concomitant]
  9. DIOVAN [Concomitant]

REACTIONS (1)
  - RASH [None]
